FAERS Safety Report 17579612 (Version 1)
Quarter: 2020Q1

REPORT INFORMATION
  Report Type: Spontaneous
  Country: JP (occurrence: JP)
  Receive Date: 20200325
  Receipt Date: 20200325
  Transmission Date: 20200409
  Serious: Yes (Other)
  Sender: FDA-Public Use
  Company Number: PHJP2018JP019009

PATIENT
  Age: 69 Year
  Sex: Female

DRUGS (2)
  1. PAZOPANIB [Suspect]
     Active Substance: PAZOPANIB
     Indication: RENAL CELL CARCINOMA
     Dosage: 800 MG, QD
     Route: 048
  2. PAZOPANIB [Suspect]
     Active Substance: PAZOPANIB
     Dosage: 600 MG, QD
     Route: 048

REACTIONS (4)
  - Metastases to lung [Recovered/Resolved]
  - Malaise [Unknown]
  - Diarrhoea [Unknown]
  - Malignant neoplasm progression [Recovered/Resolved]
